FAERS Safety Report 5538393-4 (Version None)
Quarter: 2007Q4

REPORT INFORMATION
  Report Type: 
  Country: None (occurrence: None)
  Receive Date: 20071205
  Receipt Date: 20071125
  Transmission Date: 20080405
  Serious: Yes (Hospitalization)
  Sender: FDA-Public Use
  Company Number: 2007SP016438

PATIENT
  Age: 75 Year
  Sex: Female
  Weight: 62.5964 kg

DRUGS (5)
  1. PEG-INTRON [Suspect]
     Indication: HEPATITIS C
     Dosage: SC; SC
     Route: 058
     Dates: start: 20061206, end: 20070801
  2. PEG-INTRON [Suspect]
     Indication: HEPATITIS C
     Dosage: SC; SC
     Route: 058
     Dates: start: 20070101, end: 20071121
  3. RIBAVIRIN [Suspect]
     Indication: HEPATITIS C
     Dosage: PO; PO
     Route: 048
     Dates: start: 20061206, end: 20070801
  4. RIBAVIRIN [Suspect]
     Indication: HEPATITIS C
     Dosage: PO; PO
     Route: 048
     Dates: start: 20070101, end: 20071121
  5. AMOXICILLIN [Suspect]
     Indication: DENTAL TREATMENT
     Dates: start: 20070801

REACTIONS (17)
  - ANAEMIA [None]
  - BLINDNESS TRANSIENT [None]
  - CHEST PAIN [None]
  - CONSTIPATION [None]
  - CYST [None]
  - DIARRHOEA HAEMORRHAGIC [None]
  - DIVERTICULITIS [None]
  - DYSPNOEA EXERTIONAL [None]
  - FATIGUE [None]
  - HYPOTONIA [None]
  - ORAL HERPES [None]
  - PARAESTHESIA [None]
  - STAPHYLOCOCCAL INFECTION [None]
  - VISION BLURRED [None]
  - VOMITING [None]
  - WEIGHT DECREASED [None]
  - WHITE BLOOD CELL COUNT DECREASED [None]
